FAERS Safety Report 15964291 (Version 1)
Quarter: 2019Q1

REPORT INFORMATION
  Report Type: Report from Study
  Country: None (occurrence: US)
  Receive Date: 20190215
  Receipt Date: 20190215
  Transmission Date: 20190417
  Serious: Yes (Other)
  Sender: FDA-Public Use
  Company Number: US-ABBVIE-19K-163-2662064-00

PATIENT
  Sex: Female

DRUGS (1)
  1. HUMIRA [Suspect]
     Active Substance: ADALIMUMAB
     Indication: COLITIS ULCERATIVE
     Route: 058

REACTIONS (4)
  - Depression [Unknown]
  - Pharyngitis streptococcal [Recovered/Resolved]
  - Anxiety [Unknown]
  - Intentional self-injury [Unknown]

NARRATIVE: CASE EVENT DATE: 2019
